FAERS Safety Report 5154262-6 (Version None)
Quarter: 2006Q4

REPORT INFORMATION
  Report Type: 
  Country: None (occurrence: None)
  Receive Date: 20061120
  Receipt Date: 20061108
  Transmission Date: 20070319
  Serious: Yes (Other)
  Sender: FDA-Public Use
  Company Number: DE-ELI_LILLY_AND_COMPANY-DE200611001788

PATIENT
  Age: 36 Year
  Sex: Male
  Weight: 61 kg

DRUGS (6)
  1. CYMBALTA [Suspect]
     Indication: DEPRESSION
     Dosage: 30 MG, DAILY (1/D)
     Route: 048
     Dates: start: 20060920
  2. CYMBALTA [Suspect]
     Dosage: 60 MG, DAILY (1/D)
     Route: 048
     Dates: end: 20061025
  3. STANGYL [Concomitant]
     Dosage: 100 MG, UNK
  4. PROPRANOLOL [Concomitant]
     Dosage: 10 MG, 3/D
     Route: 048
  5. NAKOM [Concomitant]
     Dosage: 100 MG, UNK
  6. PANTOZOL [Concomitant]

REACTIONS (4)
  - ABDOMINAL PAIN [None]
  - ALANINE AMINOTRANSFERASE INCREASED [None]
  - ASPARTATE AMINOTRANSFERASE INCREASED [None]
  - GAMMA-GLUTAMYLTRANSFERASE INCREASED [None]
